FAERS Safety Report 20355505 (Version 1)
Quarter: 2022Q1

REPORT INFORMATION
  Report Type: Spontaneous
  Country: US (occurrence: None)
  Receive Date: 20220120
  Receipt Date: 20220120
  Transmission Date: 20220423
  Serious: Yes (Hospitalization)
  Sender: FDA-Public Use
  Company Number: None

PATIENT
  Age: 66 Year
  Sex: Male
  Weight: 78.47 kg

DRUGS (16)
  1. CAPECITABINE [Suspect]
     Active Substance: CAPECITABINE
     Indication: Rectal cancer
     Dosage: FREQUENCY : TWICE A DAY;?
     Route: 048
     Dates: start: 20220104
  2. ALPRAZOLAM [Concomitant]
  3. AMLODIPINE [Concomitant]
     Active Substance: AMLODIPINE BESYLATE
  4. ASPIRIN [Concomitant]
  5. ATORVASTATIN [Concomitant]
  6. DEXAMETHASONE [Concomitant]
     Active Substance: DEXAMETHASONE
  7. EZETIMIBE [Concomitant]
  8. FOLIC ACID [Concomitant]
  9. MAGNESIUM OXIDE [Concomitant]
     Active Substance: MAGNESIUM OXIDE
  10. METOPROLOL [Concomitant]
     Active Substance: METOPROLOL
  11. NITROSTAT [Concomitant]
     Active Substance: NITROGLYCERIN
  12. OMEPRAZOLE [Concomitant]
  13. ONDANSETRON [Concomitant]
  14. SILDENAFIL [Concomitant]
  15. UREA CREAM [Concomitant]
  16. MULTIVITAMIN [Concomitant]

REACTIONS (1)
  - Hospitalisation [None]
